FAERS Safety Report 9626495 (Version 2)
Quarter: 2013Q4

REPORT INFORMATION
  Report Type: Spontaneous
  Country: US (occurrence: US)
  Receive Date: 20131016
  Receipt Date: 20131024
  Transmission Date: 20140711
  Serious: No
  Sender: FDA-Public Use
  Company Number: US-009507513-1310USA005639

PATIENT
  Age: 88 Year
  Sex: Female

DRUGS (2)
  1. ASMANEX TWISTHALER [Suspect]
     Indication: RESPIRATORY DISORDER
     Dosage: 220 MICROGRAM, QD
     Route: 055
     Dates: start: 20131002
  2. PROAIR HFA [Concomitant]

REACTIONS (3)
  - Drug dose omission [Unknown]
  - Dyspnoea [Not Recovered/Not Resolved]
  - Product quality issue [Unknown]
